FAERS Safety Report 9255026 (Version 1)
Quarter: 2013Q2

REPORT INFORMATION
  Report Type: Spontaneous
  Country: US (occurrence: US)
  Receive Date: 20130425
  Receipt Date: 20130425
  Transmission Date: 20140414
  Serious: No
  Sender: FDA-Public Use
  Company Number: US-JNJFOC-20130407925

PATIENT
  Sex: Female
  Weight: 68.04 kg

DRUGS (5)
  1. DURAGESIC [Suspect]
     Indication: BACK DISORDER
     Route: 062
  2. TOPAMAX [Concomitant]
     Indication: NEUROPATHY PERIPHERAL
     Route: 065
  3. VITAMIN B [Concomitant]
     Route: 065
  4. VITAMIN B [Concomitant]
     Route: 065
  5. KLONOPIN [Concomitant]
     Indication: ANXIETY
     Route: 048

REACTIONS (2)
  - Wrong technique in drug usage process [Recovered/Resolved]
  - Product quality issue [Unknown]
